FAERS Safety Report 20324849 (Version 1)
Quarter: 2022Q1

REPORT INFORMATION
  Report Type: Spontaneous
  Country: US (occurrence: US)
  Receive Date: 20220111
  Receipt Date: 20220111
  Transmission Date: 20220424
  Serious: No
  Sender: FDA-Public Use
  Company Number: US-TAKEDA-2020TUS044104

PATIENT
  Sex: Female

DRUGS (1)
  1. VONVENDI [Suspect]
     Active Substance: VON WILLEBRAND FACTOR (RECOMBINANT)
     Indication: Product used for unknown indication
     Route: 065

REACTIONS (4)
  - Delivery [Unknown]
  - Inappropriate schedule of product administration [Unknown]
  - Product solubility abnormal [Unknown]
  - No adverse event [Unknown]
